FAERS Safety Report 25100663 (Version 1)
Quarter: 2025Q1

REPORT INFORMATION
  Report Type: Spontaneous
  Country: GB (occurrence: GB)
  Receive Date: 20250320
  Receipt Date: 20250320
  Transmission Date: 20250409
  Serious: Yes (Disabling, Other)
  Sender: CELLTRION
  Company Number: None

PATIENT

DRUGS (1)
  1. INFLIXIMAB [Suspect]
     Active Substance: INFLIXIMAB
     Indication: Axial spondyloarthritis
     Route: 042
     Dates: start: 20250217, end: 20250218

REACTIONS (2)
  - Arthritis [Not Recovered/Not Resolved]
  - Therapeutic response changed [Unknown]

NARRATIVE: CASE EVENT DATE: 20250217
